FAERS Safety Report 8854614 (Version 1)
Quarter: 2012Q4

REPORT INFORMATION
  Report Type: 
  Country: DE (occurrence: DE)
  Receive Date: 20121023
  Receipt Date: 20121023
  Transmission Date: 20130627
  Serious: Yes (Congenital Anomaly)
  Sender: FDA-Public Use
  Company Number: DE-TEVA-364230GER

PATIENT
  Age: 0 Year
  Sex: Female

DRUGS (6)
  1. METFORMIN [Suspect]
     Route: 064
  2. RAMIPRIL [Suspect]
     Route: 064
  3. METOPROLOL [Concomitant]
     Route: 064
  4. DOPEGYT [Concomitant]
     Route: 064
  5. NOVORAPID [Concomitant]
     Route: 064
  6. PROTAPHANE [Concomitant]
     Route: 064

REACTIONS (6)
  - Congenital aortic valve stenosis [Recovered/Resolved with Sequelae]
  - Mitral valve incompetence [Not Recovered/Not Resolved]
  - Bicuspid aortic valve [Not Recovered/Not Resolved]
  - Neonatal respiratory distress syndrome [Recovered/Resolved]
  - Patent ductus arteriosus [Recovered/Resolved]
  - Atrial septal defect [Not Recovered/Not Resolved]
